FAERS Safety Report 10956712 (Version 1)
Quarter: 2015Q1

REPORT INFORMATION
  Report Type: Spontaneous
  Country: US (occurrence: US)
  Receive Date: 20150326
  Receipt Date: 20150326
  Transmission Date: 20150721
  Serious: No
  Sender: FDA-Public Use
  Company Number: US-MYLANLABS-2014S1006207

PATIENT
  Sex: Male

DRUGS (2)
  1. EMSAM [Suspect]
     Active Substance: SELEGILINE
     Indication: MAJOR DEPRESSION
     Dosage: 9 MG,QD
     Route: 062
     Dates: start: 2010
  2. KLONOPIN [Concomitant]
     Active Substance: CLONAZEPAM
     Indication: SOCIAL PHOBIA
     Dosage: 1.25 MG,QD
     Route: 048

REACTIONS (3)
  - Major depression [Not Recovered/Not Resolved]
  - Drug ineffective [Not Recovered/Not Resolved]
  - Unevaluable event [Not Recovered/Not Resolved]
